FAERS Safety Report 6719788-X (Version None)
Quarter: 2010Q2

REPORT INFORMATION
  Report Type: 
  Country: None (occurrence: None)
  Receive Date: 20100511
  Receipt Date: 20100504
  Transmission Date: 20101027
  Serious: Yes (Hospitalization)
  Sender: FDA-Public Use
  Company Number: B0651931A

PATIENT
  Age: 86 Year
  Sex: Female

DRUGS (5)
  1. DEROXAT [Suspect]
     Indication: DRUG USE FOR UNKNOWN INDICATION
     Route: 048
  2. SINTROM [Suspect]
     Indication: DRUG USE FOR UNKNOWN INDICATION
     Route: 048
     Dates: start: 20100403
  3. METOPROLOL SUCCINATE [Concomitant]
  4. ZESTORETIC [Concomitant]
  5. CALCIMAGON-D3 [Concomitant]

REACTIONS (3)
  - CEREBRAL HAEMORRHAGE [None]
  - EPILEPSY [None]
  - PROTHROMBIN TIME PROLONGED [None]
